FAERS Safety Report 8085371-X (Version None)
Quarter: 2012Q1

REPORT INFORMATION
  Report Type: 
  Country: None (occurrence: None)
  Receive Date: 20120128
  Receipt Date: 20110404
  Transmission Date: 20120608
  Serious: No
  Sender: FDA-Public Use
  Company Number: PR-ABBOTT-11P-131-0707272-00

PATIENT
  Weight: 67.192 kg

DRUGS (10)
  1. FOSAMAX [Concomitant]
  2. BACTROBAN [Concomitant]
     Indication: SKIN CANCER
     Dosage: AFTER EFUDEX APPLICATION
     Route: 061
  3. BACITRACIN [Concomitant]
     Indication: SKIN CANCER
     Dosage: AFTER EFUDEX APPLICATION
     Route: 061
  4. BACLOFEN [Concomitant]
     Indication: HEADACHE
     Route: 048
  5. HUMIRA [Suspect]
     Indication: RHEUMATOID ARTHRITIS
     Route: 058
     Dates: start: 20100101, end: 20101201
  6. ATENOLOL [Concomitant]
     Indication: HYPERTENSION
  7. GABAPENTIN [Concomitant]
     Indication: ARTERIOSCLEROSIS
     Route: 048
  8. EFUDEX [Concomitant]
     Indication: SKIN CANCER
     Dosage: APPLICATION FOR 7 DAYS
     Route: 061
  9. ASPIRIN [Concomitant]
     Indication: ARTERIOSCLEROSIS
     Route: 048
  10. INSULIN [Concomitant]
     Indication: BLOOD GLUCOSE
     Route: 058

REACTIONS (5)
  - BLOOD GLUCOSE INCREASED [None]
  - HEADACHE [None]
  - HEPATIC ENZYME INCREASED [None]
  - BLOOD CHOLESTEROL INCREASED [None]
  - ALLERGIC COUGH [None]
